FAERS Safety Report 11045156 (Version 1)
Quarter: 2015Q2

REPORT INFORMATION
  Report Type: Report from Study
  Country: BR (occurrence: BR)
  Receive Date: 20150417
  Receipt Date: 20150417
  Transmission Date: 20150821
  Serious: Yes (Other)
  Sender: FDA-Public Use
  Company Number: PHHY2015BR043350

PATIENT
  Sex: Female
  Weight: 75 kg

DRUGS (1)
  1. EXELON PATCH [Suspect]
     Active Substance: RIVASTIGMINE
     Indication: PARKINSON^S DISEASE
     Dosage: HALF PATCH EVERY 24 DAYS
     Route: 062
     Dates: start: 201408

REACTIONS (4)
  - Tuberculosis [Recovered/Resolved]
  - Hypersensitivity [Unknown]
  - Tremor [Unknown]
  - Wrong technique in drug usage process [Unknown]
